FAERS Safety Report 7499212-2 (Version None)
Quarter: 2011Q2

REPORT INFORMATION
  Report Type: 
  Country: None (occurrence: None)
  Receive Date: 20110524
  Receipt Date: 20110518
  Transmission Date: 20111010
  Serious: Yes (Hospitalization, Other)
  Sender: FDA-Public Use
  Company Number: AR-AMGEN-ARGSP2011021082

PATIENT
  Age: 50 Year
  Sex: Female
  Weight: 61 kg

DRUGS (4)
  1. DICLOFENAC SODIUM [Concomitant]
     Dosage: UNK
     Route: 048
     Dates: start: 20020101
  2. CLONAZEPAM [Concomitant]
     Dosage: UNK
     Route: 048
     Dates: start: 20020101
  3. CORTICOSTEROIDS [Concomitant]
     Dosage: UNK
     Route: 048
     Dates: start: 20020101
  4. ENBREL [Suspect]
     Indication: RHEUMATOID ARTHRITIS
     Dosage: 50 MG, WEEKLY
     Route: 058
     Dates: start: 20091201, end: 20101001

REACTIONS (3)
  - IMMUNE SYSTEM DISORDER [None]
  - BONE MARROW DISORDER [None]
  - PYREXIA [None]
